FAERS Safety Report 5923143-X (Version None)
Quarter: 2008Q4

REPORT INFORMATION
  Report Type: 
  Country: None (occurrence: None)
  Receive Date: 20081020
  Receipt Date: 20081009
  Transmission Date: 20090506
  Serious: Yes (Other)
  Sender: FDA-Public Use
  Company Number: US-JNJFOC-20081002469

PATIENT
  Sex: Female
  Weight: 88.45 kg

DRUGS (3)
  1. REMICADE [Suspect]
     Route: 042
  2. REMICADE [Suspect]
     Indication: RHEUMATOID ARTHRITIS
     Route: 042
  3. STEROID [Concomitant]
     Indication: PREMEDICATION

REACTIONS (3)
  - DIABETES MELLITUS [None]
  - INFUSION RELATED REACTION [None]
  - URTICARIA [None]
